FAERS Safety Report 10229001 (Version 4)
Quarter: 2015Q3

REPORT INFORMATION
  Report Type: Report from Study
  Country: CA (occurrence: CA)
  Receive Date: 20140610
  Receipt Date: 20150925
  Transmission Date: 20151125
  Serious: Yes (Hospitalization)
  Sender: FDA-Public Use
  Company Number: PHHO2014CA008108

PATIENT
  Age: 74 Year
  Sex: Female
  Weight: 74.3 kg

DRUGS (10)
  1. LDE 225 [Suspect]
     Active Substance: ERISMODEGIB
     Indication: MYELOFIBROSIS
     Dosage: 200 MG, QD
     Route: 048
     Dates: start: 20130521, end: 20150821
  2. ATIVAN [Concomitant]
     Active Substance: LORAZEPAM
     Indication: ANXIETY
     Dosage: 1 MG, QD
     Route: 065
     Dates: start: 20130327
  3. PREDNISONE. [Concomitant]
     Active Substance: PREDNISONE
     Indication: ARTHRITIS
     Dosage: 5 MG, UNK
     Route: 065
     Dates: start: 20120409
  4. SYNTHROID [Concomitant]
     Active Substance: LEVOTHYROXINE SODIUM
     Indication: HYPOTHYROIDISM
     Dosage: 0.088 MG, UNK
     Route: 065
     Dates: start: 2003
  5. INC424 [Suspect]
     Active Substance: RUXOLITINIB
     Indication: MYELOFIBROSIS
     Dosage: 10 MG, BID
     Route: 048
     Dates: start: 20130521
  6. CIPRALEX [Concomitant]
     Active Substance: ESCITALOPRAM OXALATE
     Indication: ANXIETY
     Dosage: 5 MG, UNK
     Route: 065
     Dates: start: 20120408
  7. PRAVASTATIN [Concomitant]
     Active Substance: PRAVASTATIN\PRAVASTATIN SODIUM
     Indication: HYPERLIPIDAEMIA
     Dosage: 10 MG, UNK
     Route: 065
     Dates: start: 20130516
  8. ACETYLSALICYLIC ACID [Suspect]
     Active Substance: ASPIRIN
     Indication: PAIN
     Dosage: UNK
     Route: 065
     Dates: start: 20150522
  9. LDE 225 [Suspect]
     Active Substance: ERISMODEGIB
     Dosage: 200 MG, QD
     Route: 048
     Dates: start: 20150826
  10. ADALAT X [Concomitant]
     Indication: HYPERTENSION
     Dosage: 60 MG, UNK
     Route: 065
     Dates: start: 2008

REACTIONS (3)
  - Duodenal ulcer [Recovered/Resolved]
  - Gastric ulcer [Recovering/Resolving]
  - Gastrointestinal haemorrhage [Recovered/Resolved]

NARRATIVE: CASE EVENT DATE: 20140529
